FAERS Safety Report 17859413 (Version 1)
Quarter: 2020Q2

REPORT INFORMATION
  Report Type: Spontaneous
  Country: US (occurrence: US)
  Receive Date: 20200603
  Receipt Date: 20200603
  Transmission Date: 20200714
  Serious: No
  Sender: FDA-Public Use
  Company Number: None

PATIENT
  Age: 31 Year
  Sex: Female
  Weight: 93.15 kg

DRUGS (2)
  1. ETONOGESTREL/ETHINYL ESTRADIOL [Suspect]
     Active Substance: ETHINYL ESTRADIOL\ETONOGESTREL
     Indication: CONTRACEPTION
     Dates: start: 20200122, end: 20200311
  2. LORAZAPAM [Concomitant]
     Active Substance: LORAZEPAM

REACTIONS (3)
  - Product substitution issue [None]
  - Hot flush [None]
  - Self-injurious ideation [None]

NARRATIVE: CASE EVENT DATE: 20200122
